FAERS Safety Report 13079946 (Version 1)
Quarter: 2017Q1

REPORT INFORMATION
  Report Type: Spontaneous
  Country: AR (occurrence: AR)
  Receive Date: 20170103
  Receipt Date: 20170103
  Transmission Date: 20170428
  Serious: Yes (Death, Hospitalization)
  Sender: FDA-Public Use
  Company Number: AR-BAYER-2016-245304

PATIENT
  Age: 36 Year
  Sex: Female

DRUGS (1)
  1. ADEMPAS [Suspect]
     Active Substance: RIOCIGUAT
     Indication: PULMONARY ARTERIAL HYPERTENSION
     Dosage: 1 DF, TID
     Route: 048
     Dates: start: 20160824, end: 201611

REACTIONS (4)
  - Endocarditis bacterial [None]
  - Death [Fatal]
  - Dyspnoea [None]
  - Pulmonary arterial hypertension [None]

NARRATIVE: CASE EVENT DATE: 201610
